FAERS Safety Report 21694632 (Version 3)
Quarter: 2023Q4

REPORT INFORMATION
  Report Type: Spontaneous
  Country: US (occurrence: US)
  Receive Date: 20221207
  Receipt Date: 20231120
  Transmission Date: 20240110
  Serious: Yes (Death, Disabling, Other)
  Sender: FDA-Public Use
  Company Number: US-PFIZER INC-PV202200118477

PATIENT
  Age: 85 Year
  Sex: Male
  Weight: 64.41 kg

DRUGS (1)
  1. VYNDAMAX [Suspect]
     Active Substance: TAFAMIDIS
     Indication: Amyloidosis
     Dosage: 61 MG, 1X/DAY
     Route: 048
     Dates: end: 20230707

REACTIONS (2)
  - Cardiac failure congestive [Fatal]
  - Deafness [Unknown]

NARRATIVE: CASE EVENT DATE: 20230707
